FAERS Safety Report 7756361-9 (Version None)
Quarter: 2011Q3

REPORT INFORMATION
  Report Type: 
  Country: None (occurrence: None)
  Receive Date: 20110916
  Receipt Date: 20110909
  Transmission Date: 20111222
  Serious: Yes (Death, Hospitalization, Other)
  Sender: FDA-Public Use
  Company Number: DE-ROCHE-802598

PATIENT
  Sex: Female

DRUGS (8)
  1. NOVAMINSULFON [Concomitant]
     Dosage: DOSE: 3*20 DROPS
     Dates: start: 20090401, end: 20101001
  2. TOCILIZUMAB [Suspect]
     Indication: RHEUMATOID ARTHRITIS
     Route: 065
     Dates: start: 20100601, end: 20100825
  3. ACTONEL [Concomitant]
     Dates: start: 20050901, end: 20100901
  4. FENTANYL-100 [Concomitant]
  5. OMEPRAZOLE [Concomitant]
  6. PREDNISOLONE [Concomitant]
     Dates: start: 20090401, end: 20101001
  7. CALCIUM CARBONATE [Concomitant]
     Dates: start: 20050101, end: 20101001
  8. PANTOPRAZOLE [Concomitant]

REACTIONS (7)
  - RENAL FAILURE ACUTE [None]
  - INFECTION [None]
  - RESPIRATORY FAILURE [None]
  - PNEUMONIA ASPIRATION [None]
  - COLITIS [None]
  - LARGE INTESTINE PERFORATION [None]
  - PLEURAL EFFUSION [None]
